FAERS Safety Report 19294878 (Version 1)
Quarter: 2021Q2

REPORT INFORMATION
  Report Type: Spontaneous
  Country: US (occurrence: US)
  Receive Date: 20210524
  Receipt Date: 20210524
  Transmission Date: 20210717
  Serious: Yes (Congenital Anomaly)
  Sender: FDA-Public Use
  Company Number: US-MYLANLABS-2021M1029393

PATIENT

DRUGS (4)
  1. HEPARIN [Suspect]
     Active Substance: HEPARIN SODIUM
     Indication: ANTICOAGULANT THERAPY
     Route: 064
  2. WARFARIN [Suspect]
     Active Substance: WARFARIN
     Indication: ANTICOAGULANT THERAPY
     Route: 064
  3. FUROSEMIDE. [Suspect]
     Active Substance: FUROSEMIDE
     Indication: DRUG THERAPY
     Route: 064
  4. EPOPROSTENOL. [Suspect]
     Active Substance: EPOPROSTENOL
     Indication: PULMONARY HYPERTENSION
     Route: 064

REACTIONS (2)
  - Foetal exposure during pregnancy [Unknown]
  - Dandy-Walker syndrome [Unknown]
